FAERS Safety Report 12503846 (Version 1)
Quarter: 2016Q2

REPORT INFORMATION
  Report Type: Spontaneous
  Country: GB (occurrence: GB)
  Receive Date: 20160628
  Receipt Date: 20160628
  Transmission Date: 20160815
  Serious: Yes (Death, Hospitalization)
  Sender: FDA-Public Use
  Company Number: GB-TEVA-670171ACC

PATIENT
  Sex: Male

DRUGS (1)
  1. CISPLATIN. [Suspect]
     Active Substance: CISPLATIN
     Indication: RADIOSENSITISATION THERAPY
     Dosage: COMPLETED SEVERAL WEEKS AGO
     Route: 065

REACTIONS (3)
  - Neutropenic sepsis [Fatal]
  - Infection [Fatal]
  - Malaise [Fatal]

NARRATIVE: CASE EVENT DATE: 201606
